FAERS Safety Report 4487783-X (Version None)
Quarter: 2004Q4

REPORT INFORMATION
  Report Type: 
  Country: None (occurrence: None)
  Receive Date: 20041027
  Receipt Date: 20041027
  Transmission Date: 20050328
  Serious: Yes (Life-Threatening, Hospitalization)
  Sender: FDA-Public Use
  Company Number: None

PATIENT
  Age: 75 Year
  Sex: Female
  Weight: 46.7 kg

DRUGS (4)
  1. FAMOTIDINE [Suspect]
     Indication: GASTROINTESTINAL HAEMORRHAGE
     Dosage: 20MG  Q12H  INTRAVENOU
     Route: 042
     Dates: start: 20041019, end: 20041021
  2. COLONSCOPY [Concomitant]
  3. EGD [Concomitant]
  4. BLOOD TRANSFUSIONS [Concomitant]

REACTIONS (1)
  - PLATELET COUNT DECREASED [None]
